FAERS Safety Report 14119319 (Version 2)
Quarter: 2018Q2

REPORT INFORMATION
  Report Type: Spontaneous
  Country: US (occurrence: US)
  Receive Date: 20171024
  Receipt Date: 20180416
  Transmission Date: 20180711
  Serious: No
  Sender: FDA-Public Use
  Company Number: US-PFIZER INC-2017452827

PATIENT
  Sex: Female
  Weight: 54 kg

DRUGS (2)
  1. LETROZOLE. [Suspect]
     Active Substance: LETROZOLE
     Indication: NEOPLASM MALIGNANT
     Dosage: 2.5 MG, 1X/DAY
     Route: 048
  2. IBRANCE [Suspect]
     Active Substance: PALBOCICLIB
     Indication: NEOPLASM MALIGNANT
     Dosage: 100 MG, CYCLIC (21 DAYS ON AND 7 DAYS OFF )
     Route: 048
     Dates: start: 201605

REACTIONS (3)
  - Fatigue [Unknown]
  - Increased tendency to bruise [Unknown]
  - Full blood count decreased [Unknown]
